FAERS Safety Report 11909113 (Version 1)
Quarter: 2016Q1

REPORT INFORMATION
  Report Type: Report from Study
  Country: CA (occurrence: CA)
  Receive Date: 20160112
  Receipt Date: 20160112
  Transmission Date: 20160526
  Serious: Yes (Life-Threatening, Other)
  Sender: FDA-Public Use
  Company Number: CA-ROCHE-1691924

PATIENT
  Age: 77 Year
  Sex: Male

DRUGS (3)
  1. RITUXAN [Suspect]
     Active Substance: RITUXIMAB
     Indication: B-CELL LYMPHOMA
     Route: 042
     Dates: start: 20150806, end: 20150911
  2. CHLORAMBUCIL [Suspect]
     Active Substance: CHLORAMBUCIL
     Route: 065
     Dates: end: 2015
  3. CHLORAMBUCIL [Suspect]
     Active Substance: CHLORAMBUCIL
     Indication: B-CELL LYMPHOMA
     Route: 065
     Dates: start: 20150806, end: 20150911

REACTIONS (2)
  - Blood pressure decreased [Unknown]
  - Transient ischaemic attack [Unknown]
